FAERS Safety Report 5788430-7 (Version None)
Quarter: 2008Q2

REPORT INFORMATION
  Report Type: 
  Country: None (occurrence: None)
  Receive Date: 20080623
  Receipt Date: 20080613
  Transmission Date: 20081010
  Serious: Yes (Hospitalization)
  Sender: FDA-Public Use
  Company Number: GXKR2008US05479

PATIENT
  Age: 31 Year
  Sex: Male

DRUGS (3)
  1. TESTOSTERONE [Suspect]
  2. QUINAPRIL [Concomitant]
  3. PHENYTOIN [Concomitant]

REACTIONS (13)
  - ABDOMINAL PAIN UPPER [None]
  - ACUTE MYOCARDIAL INFARCTION [None]
  - ANGIOPLASTY [None]
  - BLOOD PRESSURE INCREASED [None]
  - CORONARY ARTERIAL STENT INSERTION [None]
  - CORONARY ARTERY DISEASE [None]
  - CORONARY ARTERY OCCLUSION [None]
  - CORONARY ARTERY THROMBOSIS [None]
  - DRUG ABUSE [None]
  - HYPERHIDROSIS [None]
  - MITRAL VALVE INCOMPETENCE [None]
  - NAUSEA [None]
  - VENTRICULAR HYPERTROPHY [None]
